FAERS Safety Report 4400820-3 (Version None)
Quarter: 2004Q3

REPORT INFORMATION
  Report Type: 
  Country: None (occurrence: None)
  Receive Date: 20040907
  Receipt Date: 20030624
  Transmission Date: 20050211
  Serious: Yes (Hospitalization)
  Sender: FDA-Public Use
  Company Number: US-BRISTOL-MYERS SQUIBB COMPANY-12308961

PATIENT
  Age: 84 Year
  Sex: Male

DRUGS (2)
  1. COUMADIN [Suspect]
     Indication: THROMBOSIS PROPHYLAXIS
  2. XENICAL [Suspect]

REACTIONS (1)
  - INTERNATIONAL NORMALISED RATIO INCREASED [None]
